FAERS Safety Report 18832235 (Version 2)
Quarter: 2021Q1

REPORT INFORMATION
  Report Type: Spontaneous
  Country: FR (occurrence: FR)
  Receive Date: 20210203
  Receipt Date: 20210206
  Transmission Date: 20210419
  Serious: Yes (Hospitalization)
  Sender: FDA-Public Use
  Company Number: FR-TEVA-2021-FR-1875039

PATIENT
  Age: 16 Year
  Sex: Male
  Weight: 54 kg

DRUGS (9)
  1. ZOPHREN 8 MG, COMPRIME PELLICULE [Concomitant]
     Active Substance: ONDANSETRON HYDROCHLORIDE
     Indication: PROPHYLAXIS OF NAUSEA AND VOMITING
     Dosage: 16 MG
     Route: 048
     Dates: start: 20200908, end: 20200915
  2. PLITICAN, SOLUTION INJECTABLE [Concomitant]
     Active Substance: ALIZAPRIDE HYDROCHLORIDE
     Indication: NAUSEA
     Dosage: 45 MG
     Route: 042
     Dates: start: 20200908, end: 20200908
  3. ACIDE FOLINIQUE [Concomitant]
     Active Substance: LEUCOVORIN
     Indication: PROPHYLAXIS
     Dosage: INC
     Route: 042
     Dates: start: 20200908, end: 20200908
  4. ALOXI [Concomitant]
     Active Substance: PALONOSETRON HYDROCHLORIDE
     Indication: NAUSEA
     Dosage: 900 MICROGRAM
     Route: 042
     Dates: start: 20200908
  5. XANAX [Concomitant]
     Active Substance: ALPRAZOLAM
     Indication: ANXIETY
     Dosage: 0.5 MILLIGRAM
     Route: 048
     Dates: start: 20200908
  6. DOLIPRANE [Concomitant]
     Active Substance: ACETAMINOPHEN
     Indication: PAIN
     Dosage: 1 DF
     Route: 048
  7. METHOTREXATE. [Suspect]
     Active Substance: METHOTREXATE
     Indication: OSTEOSARCOMA
     Dosage: 17200 MG
     Route: 042
     Dates: start: 20200908, end: 20200908
  8. SYMBICORT [Concomitant]
     Active Substance: BUDESONIDE\FORMOTEROL FUMARATE DIHYDRATE
     Indication: ASTHMA
     Dosage: 2 DF
     Route: 055
     Dates: start: 2017
  9. TOPALGIC LP 50 MG, COMPRIME A LIBERATION PROLONGEE [Concomitant]
     Active Substance: TRAMADOL HYDROCHLORIDE
     Indication: PAIN
     Dosage: 100 MG
     Route: 048

REACTIONS (1)
  - Hepatocellular injury [Recovered/Resolved]

NARRATIVE: CASE EVENT DATE: 20200909
